FAERS Safety Report 7158422-4 (Version None)
Quarter: 2010Q4

REPORT INFORMATION
  Report Type: 
  Country: None (occurrence: None)
  Receive Date: 20101214
  Receipt Date: 20100609
  Transmission Date: 20110411
  Serious: No
  Sender: FDA-Public Use
  Company Number: US-ASTRAZENECA-2010SE26935

PATIENT
  Sex: Male

DRUGS (8)
  1. CRESTOR [Suspect]
     Route: 048
     Dates: start: 20070101, end: 20100101
  2. PLAVIX [Concomitant]
  3. ASPIRIN [Concomitant]
  4. MAGNESIUM [Concomitant]
  5. FLOMAX [Concomitant]
  6. DIGOXIN [Concomitant]
  7. KAPIDEX [Concomitant]
  8. CIALIS [Concomitant]

REACTIONS (4)
  - FEELING OF BODY TEMPERATURE CHANGE [None]
  - OROPHARYNGEAL SWELLING [None]
  - RASH [None]
  - SKIN SWELLING [None]
